FAERS Safety Report 4657605-2 (Version None)
Quarter: 2005Q2

REPORT INFORMATION
  Report Type: 
  Country: None (occurrence: None)
  Receive Date: 20050506
  Receipt Date: 20050427
  Transmission Date: 20051028
  Serious: Yes (Other)
  Sender: FDA-Public Use
  Company Number: 2005-04-2156

PATIENT
  Age: 48 Year
  Sex: Female

DRUGS (2)
  1. PEG-INTRON [Suspect]
  2. RIBAVIRIN [Suspect]
     Dosage: ORAL
     Route: 048

REACTIONS (3)
  - DEHYDRATION [None]
  - ENCEPHALOPATHY [None]
  - VOMITING [None]
